FAERS Safety Report 4653505-2 (Version None)
Quarter: 2005Q2

REPORT INFORMATION
  Report Type: 
  Country: None (occurrence: None)
  Receive Date: 20050505
  Receipt Date: 20050131
  Transmission Date: 20051028
  Serious: Yes (Death, Hospitalization)
  Sender: FDA-Public Use
  Company Number: US-MERCK-0502USA00034

PATIENT
  Age: 68 Year
  Sex: Male
  Weight: 91 kg

DRUGS (5)
  1. VIOXX [Suspect]
     Indication: RHEUMATOID ARTHRITIS
     Route: 048
     Dates: start: 20000606, end: 20030104
  2. LIPITOR [Concomitant]
     Route: 065
     Dates: end: 20030104
  3. VERAPAMIL [Concomitant]
     Route: 065
     Dates: end: 20030104
  4. FLOVENT [Concomitant]
     Route: 065
  5. COMBIVENT [Concomitant]
     Route: 065

REACTIONS (2)
  - CARDIO-RESPIRATORY ARREST [None]
  - HYPERTENSIVE HEART DISEASE [None]
